FAERS Safety Report 13157171 (Version 4)
Quarter: 2017Q2

REPORT INFORMATION
  Report Type: Report from Study
  Country: US (occurrence: US)
  Receive Date: 20170127
  Receipt Date: 20170424
  Transmission Date: 20170830
  Serious: Yes (Hospitalization, Other)
  Sender: FDA-Public Use
  Company Number: US-009507513-1701USA008496

PATIENT
  Age: 62 Year
  Sex: Female
  Weight: 83.45 kg

DRUGS (4)
  1. PRINIVIL [Concomitant]
     Active Substance: LISINOPRIL
     Dosage: UNK
  2. ATORVASTATIN [Concomitant]
     Active Substance: ATORVASTATIN
     Dosage: UNK
  3. CHLORTHALIDONE. [Concomitant]
     Active Substance: CHLORTHALIDONE
     Dosage: UNK
  4. PEMBROLIZUMAB. [Suspect]
     Active Substance: PEMBROLIZUMAB
     Indication: NON-SMALL CELL LUNG CANCER
     Dosage: 175 MG, Q3W
     Route: 042
     Dates: start: 20170116, end: 20170331

REACTIONS (11)
  - Somnolence [Unknown]
  - Hyperglycaemia [Recovering/Resolving]
  - Clostridium difficile infection [Unknown]
  - Hypotonia [Recovered/Resolved]
  - Nausea [Unknown]
  - Fatigue [Recovered/Resolved]
  - Pneumonia [Unknown]
  - Dysphagia [Recovered/Resolved]
  - Back disorder [Unknown]
  - Sluggishness [Unknown]
  - Eating disorder [Unknown]

NARRATIVE: CASE EVENT DATE: 2017
